FAERS Safety Report 7178851-2 (Version None)
Quarter: 2010Q4

REPORT INFORMATION
  Report Type: 
  Country: None (occurrence: None)
  Receive Date: 20101221
  Receipt Date: 20101215
  Transmission Date: 20110411
  Serious: Yes (Other)
  Sender: FDA-Public Use
  Company Number: US-BRISTOL-MYERS SQUIBB COMPANY-15443104

PATIENT
  Sex: Female

DRUGS (17)
  1. ORENCIA [Suspect]
     Dates: start: 20080101
  2. CELEBREX [Concomitant]
  3. ASPIRIN [Concomitant]
  4. CARTIA XT [Concomitant]
  5. PREMARIN [Concomitant]
  6. SIMVASTATIN [Concomitant]
  7. XANAX [Concomitant]
     Dosage: EVERY NIGHT
  8. LUNESTA [Concomitant]
  9. M.V.I. [Concomitant]
  10. FISH OIL [Concomitant]
  11. MAGNESIUM [Concomitant]
  12. ZINC [Concomitant]
  13. CALCIUM [Concomitant]
  14. VITAMIN B-12 [Concomitant]
  15. VITAMIN D3 [Concomitant]
     Dosage: 1DF=1000 UNITS
  16. PREDNISONE [Concomitant]
     Dosage: TABLET
  17. ACIDOPHILUS [Concomitant]

REACTIONS (2)
  - FATIGUE [None]
  - SKIN ULCER [None]
